FAERS Safety Report 9361187 (Version 1)
Quarter: 2013Q2

REPORT INFORMATION
  Report Type: Report from Study
  Country: TR (occurrence: TR)
  Receive Date: 20130621
  Receipt Date: 20130621
  Transmission Date: 20140414
  Serious: Yes (Hospitalization)
  Sender: FDA-Public Use
  Company Number: TR-BRISTOL-MYERS SQUIBB COMPANY-19028208

PATIENT
  Age: 62 Year
  Sex: Male

DRUGS (3)
  1. APIXABAN [Suspect]
     Indication: THROMBOSIS PROPHYLAXIS
     Route: 048
     Dates: start: 20100323
  2. RAMIPRIL [Concomitant]
     Dates: start: 2009
  3. ASA [Concomitant]
     Dates: start: 2009

REACTIONS (1)
  - Atrial fibrillation [Recovered/Resolved]
